FAERS Safety Report 16544843 (Version 1)
Quarter: 2019Q3

REPORT INFORMATION
  Report Type: Spontaneous
  Country: US (occurrence: US)
  Receive Date: 20190708
  Receipt Date: 20190708
  Transmission Date: 20191004
  Serious: Yes (Other)
  Sender: FDA-Public Use
  Company Number: None

PATIENT
  Age: 49 Year
  Sex: Female
  Weight: 47.25 kg

DRUGS (2)
  1. EQUATE RESTORE PM NIGHTTIME LUBRICANT EYE [Suspect]
     Active Substance: MINERAL OIL\PETROLATUM
     Indication: DRY EYE
     Dosage: ?          QUANTITY:1 DROP(S);?
     Route: 047
     Dates: start: 20170101, end: 20190615
  2. EQUATE RESTORE PM NIGHTTIME LUBRICANT EYE [Suspect]
     Active Substance: MINERAL OIL\PETROLATUM
     Indication: DRY EYE
     Dosage: ?          QUANTITY:1 DROP(S);?
     Route: 047
     Dates: start: 20180701, end: 20190615

REACTIONS (6)
  - Eyelid disorder [None]
  - Visual impairment [None]
  - Impaired work ability [None]
  - Eye infection staphylococcal [None]
  - Adhesion [None]
  - Recalled product administered [None]

NARRATIVE: CASE EVENT DATE: 20190608
